FAERS Safety Report 8716640 (Version 4)
Quarter: 2013Q4

REPORT INFORMATION
  Report Type: Spontaneous
  Country: US (occurrence: US)
  Receive Date: 20120810
  Receipt Date: 20131202
  Transmission Date: 20140711
  Serious: Yes (Hospitalization)
  Sender: FDA-Public Use
  Company Number: US-BIOGENIDEC-2012BI029595

PATIENT
  Age: 31 Year
  Sex: Female

DRUGS (1)
  1. TYSABRI [Suspect]
     Indication: MULTIPLE SCLEROSIS
     Route: 042
     Dates: start: 20100611, end: 20120629

REACTIONS (5)
  - Staphylococcal infection [Recovered/Resolved]
  - Pneumothorax [Recovered/Resolved]
  - Impaired healing [Recovered/Resolved]
  - Pain in extremity [Recovered/Resolved]
  - Arthralgia [Recovered/Resolved]
